FAERS Safety Report 25153149 (Version 2)
Quarter: 2025Q4

REPORT INFORMATION
  Report Type: Report from Study
  Country: US (occurrence: US)
  Receive Date: 20250403
  Receipt Date: 20251209
  Transmission Date: 20260117
  Serious: Yes (Other)
  Sender: ROCHE
  Company Number: US-ROCHE-10000237622

PATIENT
  Age: 68 Year
  Sex: Male
  Weight: 83.91 kg

DRUGS (8)
  1. XOLAIR [Suspect]
     Active Substance: OMALIZUMAB
     Indication: Idiopathic urticaria
     Route: 058
  2. OMEPRAZOLE [Concomitant]
     Active Substance: OMEPRAZOLE
     Indication: Dyspepsia
     Route: 048
  3. HYDROXYZINE [Concomitant]
     Active Substance: HYDROXYZINE HYDROCHLORIDE
     Indication: Urticaria
     Dosage: TAKES BEFORE BEDTIME
     Route: 048
  4. FAMOTIDINE [Concomitant]
     Active Substance: FAMOTIDINE
     Route: 048
  5. REGLAN [Concomitant]
     Active Substance: METOCLOPRAMIDE HYDROCHLORIDE
  6. PREDNISONE [Concomitant]
     Active Substance: PREDNISONE
     Indication: Urticaria
     Route: 048
  7. MONTELUKAST [Concomitant]
     Active Substance: MONTELUKAST
     Route: 048
  8. CITALOPRAM [Concomitant]
     Active Substance: CITALOPRAM
     Indication: Anxiety
     Route: 048

REACTIONS (25)
  - Urticaria [Not Recovered/Not Resolved]
  - Pain [Not Recovered/Not Resolved]
  - Nausea [Not Recovered/Not Resolved]
  - Vomiting [Not Recovered/Not Resolved]
  - Fatigue [Not Recovered/Not Resolved]
  - Dyspnoea exertional [Unknown]
  - Colitis [Unknown]
  - Aortic aneurysm [Unknown]
  - Femoral artery aneurysm [Unknown]
  - Vertigo [Unknown]
  - Chronic obstructive pulmonary disease [Unknown]
  - Femur fracture [Unknown]
  - Arthralgia [Unknown]
  - Pain in extremity [Unknown]
  - Chest pain [Recovered/Resolved]
  - Vertigo positional [Unknown]
  - Ligament sprain [Unknown]
  - Obstructive sleep apnoea syndrome [Unknown]
  - Ecchymosis [Unknown]
  - Rosacea [Unknown]
  - Haemorrhage [Unknown]
  - Gait disturbance [Unknown]
  - General physical health deterioration [Unknown]
  - Weight decreased [Unknown]
  - Night sweats [Unknown]

NARRATIVE: CASE EVENT DATE: 20250301
